FAERS Safety Report 18529099 (Version 2)
Quarter: 2020Q4

REPORT INFORMATION
  Report Type: Spontaneous
  Country: US (occurrence: US)
  Receive Date: 20201120
  Receipt Date: 20201214
  Transmission Date: 20210114
  Serious: No
  Sender: FDA-Public Use
  Company Number: US-NOVOPROD-744256

PATIENT
  Sex: Female

DRUGS (2)
  1. INSULIN ASPART FLEXPEN [Suspect]
     Active Substance: INSULIN ASPART
     Indication: TYPE 2 DIABETES MELLITUS
     Dosage: 10 IU, QD (10 UNITS EVERYDAY WITH SUPPER)
     Route: 058
  2. LEVEMIR [Suspect]
     Active Substance: INSULIN DETEMIR
     Indication: TYPE 2 DIABETES MELLITUS
     Dosage: 40 IU, QD (40 UNITS EVERYDAY IN THE MORNING)
     Route: 058
     Dates: start: 2019

REACTIONS (4)
  - Motion sickness [Unknown]
  - Feeling abnormal [Unknown]
  - Abdominal distension [Not Recovered/Not Resolved]
  - Weight increased [Not Recovered/Not Resolved]
